FAERS Safety Report 7360905-9 (Version None)
Quarter: 2011Q1

REPORT INFORMATION
  Report Type: 
  Country: None (occurrence: None)
  Receive Date: 20110318
  Receipt Date: 20110304
  Transmission Date: 20110831
  Serious: Yes (Disabling, Other)
  Sender: FDA-Public Use
  Company Number: PHEH2010US01802

PATIENT
  Sex: Female

DRUGS (9)
  1. STEROIDS NOS [Concomitant]
  2. GOODYS POWDERS [Concomitant]
  3. VITAMIN B-12 [Concomitant]
     Dosage: 2500 U, QD
  4. MULTI-VITAMINS [Concomitant]
  5. NEURONTIN [Concomitant]
     Dosage: 400 MG, TID
  6. M.V.I. [Concomitant]
     Dosage: 1 DF, QD
  7. IBUPROFEN [Concomitant]
     Dosage: 600 MG, PRN
  8. ACETAMINOPHEN [Concomitant]
  9. EXTAVIA [Suspect]
     Indication: MULTIPLE SCLEROSIS
     Dosage: 0.25 MG, QOD
     Route: 058
     Dates: start: 20100128

REACTIONS (10)
  - INFLUENZA LIKE ILLNESS [None]
  - MYALGIA [None]
  - DRUG DOSE OMISSION [None]
  - BLOOD ALKALINE PHOSPHATASE INCREASED [None]
  - ASPARTATE AMINOTRANSFERASE INCREASED [None]
  - MENISCUS LESION [None]
  - DYSPHAGIA [None]
  - FATIGUE [None]
  - INJECTION SITE PAIN [None]
  - ALOPECIA [None]
